FAERS Safety Report 6118619-9 (Version None)
Quarter: 2009Q1

REPORT INFORMATION
  Report Type: 
  Country: None (occurrence: None)
  Receive Date: 20090314
  Receipt Date: 20090223
  Transmission Date: 20090719
  Serious: No
  Sender: FDA-Public Use
  Company Number: US-ABBOTT-09P-163-0558955-00

PATIENT
  Sex: Female
  Weight: 72.64 kg

DRUGS (18)
  1. HUMIRA [Suspect]
     Indication: RHEUMATOID ARTHRITIS
     Route: 058
     Dates: start: 20070101
  2. METHOTREXATE [Concomitant]
     Indication: RHEUMATOID ARTHRITIS
     Route: 048
  3. LISINOPRIL [Concomitant]
     Indication: HYPERTENSION
     Route: 048
  4. LYRICA [Concomitant]
     Indication: FIBROMYALGIA
     Route: 048
  5. SOMA [Concomitant]
     Indication: BACK PAIN
     Route: 048
  6. SOMA [Concomitant]
     Indication: MUSCLE RELAXANT THERAPY
  7. SOMA [Concomitant]
     Indication: NERVE INJURY
  8. SOMA [Concomitant]
     Indication: ROAD TRAFFIC ACCIDENT
  9. FENTANYL-25 [Concomitant]
     Indication: BACK PAIN
     Dosage: PAIN PUMP 480 CONC 74.98 MG/DAY
     Route: 050
     Dates: start: 20080901
  10. FENTANYL-25 [Concomitant]
     Indication: ROAD TRAFFIC ACCIDENT
  11. HYDROCODONE BITARTRATE AND ACETAMINOPHEN [Concomitant]
     Indication: BACK PAIN
     Route: 048
  12. MULTI-VITAMIN [Concomitant]
     Indication: VITAMIN SUPPLEMENTATION
     Route: 048
  13. CALTRATE + D [Concomitant]
     Indication: MINERAL SUPPLEMENTATION
     Route: 048
  14. FOLIC ACID [Concomitant]
     Indication: VITAMIN SUPPLEMENTATION
     Route: 048
  15. CELEXA [Concomitant]
     Indication: DEPRESSION
     Route: 048
  16. AMBIEN [Concomitant]
     Indication: INSOMNIA
     Route: 048
  17. XANAX [Concomitant]
     Indication: INSOMNIA
     Route: 048
  18. FOSAMAX [Concomitant]
     Indication: OSTEOPOROSIS
     Route: 048

REACTIONS (4)
  - ARTHRALGIA [None]
  - JOINT SWELLING [None]
  - PAIN IN EXTREMITY [None]
  - VITAMIN D DECREASED [None]
